FAERS Safety Report 7807548-8 (Version None)
Quarter: 2011Q4

REPORT INFORMATION
  Report Type: 
  Country: None (occurrence: None)
  Receive Date: 20111011
  Receipt Date: 20111005
  Transmission Date: 20120403
  Serious: Yes (Hospitalization)
  Sender: FDA-Public Use
  Company Number: BR-GLAXOSMITHKLINE-A0948497A

PATIENT
  Sex: Female
  Weight: 14 kg

DRUGS (1)
  1. CEFUROXIME [Suspect]
     Indication: SINUSITIS
     Dosage: 3.5ML TWICE PER DAY
     Route: 048
     Dates: start: 20110929

REACTIONS (2)
  - ADVERSE EVENT [None]
  - HOSPITALISATION [None]
